FAERS Safety Report 7694258-3 (Version None)
Quarter: 2011Q3

REPORT INFORMATION
  Report Type: 
  Country: None (occurrence: None)
  Receive Date: 20110819
  Receipt Date: 20110812
  Transmission Date: 20111222
  Serious: Yes (Other)
  Sender: FDA-Public Use
  Company Number: US-GLAXOSMITHKLINE-A0941562A

PATIENT
  Age: 44 Year
  Sex: Male
  Weight: 102.3 kg

DRUGS (4)
  1. LYRICA [Concomitant]
     Dosage: 300MG TWICE PER DAY
     Route: 048
     Dates: start: 20090101, end: 20110101
  2. EFFEXOR [Suspect]
     Indication: NEUROPATHY PERIPHERAL
     Dosage: 75MG PER DAY
     Route: 048
     Dates: end: 20110101
  3. NEURONTIN [Suspect]
     Indication: NEUROPATHY PERIPHERAL
     Dosage: 300MG THREE TIMES PER DAY
     Route: 048
     Dates: start: 20110501, end: 20110101
  4. ZANTAC [Suspect]
     Indication: NASOPHARYNGITIS

REACTIONS (9)
  - THINKING ABNORMAL [None]
  - DYSPNOEA [None]
  - FEELING ABNORMAL [None]
  - DRUG INEFFECTIVE [None]
  - HEART RATE INCREASED [None]
  - HYPERSENSITIVITY [None]
  - PAIN [None]
  - ANAPHYLACTIC SHOCK [None]
  - MUSCLE TIGHTNESS [None]
